FAERS Safety Report 10068617 (Version 1)
Quarter: 2014Q2

REPORT INFORMATION
  Report Type: Spontaneous
  Country: US (occurrence: US)
  Receive Date: 20140409
  Receipt Date: 20140409
  Transmission Date: 20141212
  Serious: Yes (Disabling)
  Sender: FDA-Public Use
  Company Number: US-GLAXOSMITHKLINE-A1068084A

PATIENT
  Age: 44 Year
  Sex: Male

DRUGS (3)
  1. VOTRIENT [Suspect]
     Indication: THYROID CANCER
     Dosage: 800MG PER DAY
     Route: 048
     Dates: start: 20131107
  2. VITAMIN D [Concomitant]
  3. LEVOTHYROXINE [Concomitant]

REACTIONS (2)
  - Dysgeusia [Unknown]
  - Anosmia [Unknown]
